FAERS Safety Report 13564586 (Version 1)
Quarter: 2017Q2

REPORT INFORMATION
  Report Type: Other
  Country: None (occurrence: US)
  Receive Date: 20170519
  Receipt Date: 20170519
  Transmission Date: 20170830
  Serious: Yes (Hospitalization)
  Sender: FDA-Public Use
  Company Number: US-GUTHY-RENKER LLC-2020988

PATIENT
  Sex: Female

DRUGS (2)
  1. UNDISCLOSED HEART MEDICATIONS AND BLOOD THINNERS [Concomitant]
  2. MEANINGFUL BEAUTY CINDY CRAWFORD ANTIOXIDANT SPF 20 UVA/UVB [Suspect]
     Active Substance: AVOBENZONE\OCTINOXATE\OCTISALATE\OXYBENZONE
     Indication: PROPHYLAXIS AGAINST SOLAR RADIATION
     Route: 061
     Dates: start: 20161228, end: 20170510

REACTIONS (2)
  - Rash [Unknown]
  - Drug hypersensitivity [None]

NARRATIVE: CASE EVENT DATE: 20170510
